FAERS Safety Report 5067438-3 (Version None)
Quarter: 2006Q3

REPORT INFORMATION
  Report Type: 
  Country: None (occurrence: None)
  Receive Date: 20060731
  Receipt Date: 20060714
  Transmission Date: 20061208
  Serious: Yes (Hospitalization)
  Sender: FDA-Public Use
  Company Number: 0206022

PATIENT
  Age: 66 Year
  Sex: Female
  Weight: 117.028 kg

DRUGS (6)
  1. DEPODUR [Suspect]
     Indication: PROCEDURAL PAIN
     Dosage: 10 MG, EPIDURAL
     Route: 008
     Dates: start: 20060410, end: 20060410
  2. FENTANYL [Concomitant]
  3. VERSED [Concomitant]
  4. ZOFRAN [Concomitant]
  5. PERCOSET (TYLOX/00446701/) [Concomitant]
  6. MORPHINE SULFATE [Concomitant]

REACTIONS (9)
  - BLOOD PRESSURE DIASTOLIC DECREASED [None]
  - BLOOD PRESSURE SYSTOLIC INCREASED [None]
  - BODY TEMPERATURE INCREASED [None]
  - HEART RATE INCREASED [None]
  - LOSS OF CONSCIOUSNESS [None]
  - OXYGEN SATURATION DECREASED [None]
  - POST PROCEDURAL COMPLICATION [None]
  - RESPIRATORY DEPRESSION [None]
  - RESPIRATORY RATE DECREASED [None]
